FAERS Safety Report 8333059-X (Version None)
Quarter: 2012Q2

REPORT INFORMATION
  Report Type: 
  Country: None (occurrence: None)
  Receive Date: 20120503
  Receipt Date: 20120430
  Transmission Date: 20120825
  Serious: Yes (Death)
  Sender: FDA-Public Use
  Company Number: PHHY2012IL037031

PATIENT
  Age: 78 Year
  Sex: Female

DRUGS (2)
  1. SANDOSTATIN LAR [Suspect]
     Dosage: 30 MG, EVERY 28 DAYS
     Dates: end: 20120403
  2. SANDOSTATIN LAR [Suspect]
     Indication: ACROMEGALY
     Dosage: 30 MG, EVERY 28 DAYS
     Dates: start: 20070724

REACTIONS (1)
  - CARDIAC ARREST [None]
